FAERS Safety Report 8286378-X (Version None)
Quarter: 2012Q2

REPORT INFORMATION
  Report Type: 
  Country: None (occurrence: None)
  Receive Date: 20120416
  Receipt Date: 20120409
  Transmission Date: 20120825
  Serious: Yes (Other)
  Sender: FDA-Public Use
  Company Number: JP-ACCORD-013020

PATIENT

DRUGS (4)
  1. SEROTONIN ANTAGONISTS [Concomitant]
     Indication: PREMEDICATION
  2. IRINOTECAN HYDROCHLORIDE [Suspect]
     Indication: GASTRIC CANCER
     Dosage: GIVEN AS 90 MIN IV INFUSION
     Route: 042
  3. DEXAMETHASONE [Concomitant]
     Indication: PREMEDICATION
  4. MITOMYCIN [Suspect]
     Indication: GASTRIC CANCER
     Dosage: GIVEN AS AN IV BOLUS ON DAY 1 OF A 14-DAY CYCLE.
     Route: 040

REACTIONS (2)
  - INTERSTITIAL LUNG DISEASE [None]
  - OFF LABEL USE [None]
